FAERS Safety Report 7057820-7 (Version None)
Quarter: 2010Q4

REPORT INFORMATION
  Report Type: 
  Country: None (occurrence: None)
  Receive Date: 20101022
  Receipt Date: 20101018
  Transmission Date: 20110411
  Serious: Yes (Death, Hospitalization)
  Sender: FDA-Public Use
  Company Number: US-GILEAD-2010-0032547

PATIENT
  Sex: Male

DRUGS (18)
  1. LETAIRIS [Suspect]
     Indication: PULMONARY ARTERIAL HYPERTENSION
     Route: 048
     Dates: start: 20071002
  2. REMODULIN SQ [Concomitant]
  3. REVATIO [Concomitant]
  4. COUMADIN [Concomitant]
  5. OXYGEN [Concomitant]
  6. LASIX [Concomitant]
  7. ALDACTONE [Concomitant]
  8. CARDIZEM CD [Concomitant]
  9. DIGOXIN [Concomitant]
  10. METOLAZONE [Concomitant]
  11. LORTAB [Concomitant]
  12. SPIRIVA [Concomitant]
  13. GLIPIZIDE [Concomitant]
  14. NEXIUM [Concomitant]
  15. ALLOPURINOL [Concomitant]
  16. AMBIEN [Concomitant]
  17. MORPHINE [Concomitant]
  18. POTASSIUM CHLORIDE [Concomitant]

REACTIONS (2)
  - DEATH [None]
  - FLUID OVERLOAD [None]
